FAERS Safety Report 13017221 (Version 1)
Quarter: 2016Q4

REPORT INFORMATION
  Report Type: Spontaneous
  Country: US (occurrence: US)
  Receive Date: 20161209
  Receipt Date: 20161209
  Transmission Date: 20170207
  Serious: Yes (Disabling)
  Sender: FDA-Public Use
  Company Number: None

PATIENT
  Age: 46 Year
  Sex: Female
  Weight: 97.61 kg

DRUGS (6)
  1. VITAMIN B2 [Concomitant]
     Active Substance: RIBOFLAVIN
  2. LYRICA [Suspect]
     Active Substance: PREGABALIN
     Indication: NEUROPATHY PERIPHERAL
     Dosage: ?          QUANTITY:MY UI?FIF-??AGM;?
     Route: 048
     Dates: start: 20160620, end: 20160920
  3. FISH OIL [Concomitant]
     Active Substance: FISH OIL
  4. DHA OMEGA 3 [Concomitant]
     Active Substance: OMEGA-3 FATTY ACIDS
  5. MAGNESIUM [Concomitant]
     Active Substance: MAGNESIUM
  6. VITAMIN D [Concomitant]
     Active Substance: CHOLECALCIFEROL

REACTIONS (7)
  - Photosensitivity reaction [None]
  - Optic nerve disorder [None]
  - Papilloedema [None]
  - Visual field defect [None]
  - Visual impairment [None]
  - Hallucination [None]
  - Dizziness [None]

NARRATIVE: CASE EVENT DATE: 20160704
